FAERS Safety Report 6143510-1 (Version None)
Quarter: 2009Q2

REPORT INFORMATION
  Report Type: 
  Country: None (occurrence: None)
  Receive Date: 20090403
  Receipt Date: 20090403
  Transmission Date: 20091009
  Serious: Yes (Death)
  Sender: FDA-Public Use
  Company Number: AU-B.I. PHARMACEUTICALS,INC./RIDGEFIELD-2009-AU-00020AU

PATIENT
  Sex: Male

DRUGS (6)
  1. SPIRIVA [Suspect]
     Indication: CHRONIC OBSTRUCTIVE PULMONARY DISEASE
     Dosage: 18MCG
     Route: 055
     Dates: start: 20080721
  2. DILATREND [Concomitant]
     Indication: CARDIAC FAILURE CONGESTIVE
     Dosage: 25MG
     Route: 048
     Dates: start: 20080529
  3. COVERSYL PLUS [Concomitant]
     Indication: CARDIAC FAILURE CONGESTIVE
     Dosage: 5MG/1.25MG
     Route: 048
     Dates: start: 20080529
  4. PLAVIX [Concomitant]
     Indication: ANGINA PECTORIS
     Dosage: 75MG
     Route: 048
     Dates: start: 20080502
  5. NEXIUM [Concomitant]
     Indication: DYSPEPSIA
     Dosage: 40MG
     Route: 048
     Dates: start: 20080414
  6. LIPITOR [Concomitant]
     Indication: HYPERLIPIDAEMIA
     Dosage: 20MG
     Route: 048
     Dates: start: 20040101

REACTIONS (1)
  - MYOCARDIAL INFARCTION [None]
